FAERS Safety Report 16648381 (Version 1)
Quarter: 2019Q3

REPORT INFORMATION
  Report Type: Spontaneous
  Country: CH (occurrence: CH)
  Receive Date: 20190730
  Receipt Date: 20190730
  Transmission Date: 20191004
  Serious: Yes (Other)
  Sender: FDA-Public Use
  Company Number: CH-OTSUKA-2019_027749

PATIENT
  Sex: Male

DRUGS (7)
  1. ABILIFY MAINTENA [Suspect]
     Active Substance: ARIPIPRAZOLE
     Indication: PRODUCT USED FOR UNKNOWN INDICATION
     Dosage: 400 MG, UNK
     Route: 030
     Dates: start: 20190613, end: 20190613
  2. ABILIFY [Suspect]
     Active Substance: ARIPIPRAZOLE
     Dosage: 15 MG, QD
     Route: 048
     Dates: start: 20190604, end: 20190706
  3. TESTOVIRON [Concomitant]
     Active Substance: TESTOSTERONE
     Indication: ANDROGEN DEFICIENCY
     Dosage: 250 MG, QM
     Route: 030
     Dates: start: 1983
  4. RISPERDAL [Suspect]
     Active Substance: RISPERIDONE
     Dosage: 2 MG, QD
     Route: 048
     Dates: start: 2019, end: 2019
  5. ABILIFY [Suspect]
     Active Substance: ARIPIPRAZOLE
     Indication: PRODUCT USED FOR UNKNOWN INDICATION
     Dosage: 10 MG, QD
     Route: 048
     Dates: start: 20190527, end: 20190603
  6. ABILIFY MAINTENA [Suspect]
     Active Substance: ARIPIPRAZOLE
     Dosage: 300 MG, UNK
     Route: 030
     Dates: start: 20190711, end: 20190711
  7. RISPERDAL [Suspect]
     Active Substance: RISPERIDONE
     Indication: PRODUCT USED FOR UNKNOWN INDICATION
     Dosage: 4 MG, QD
     Route: 048
     Dates: start: 2019, end: 2019

REACTIONS (3)
  - Salivary hypersecretion [Not Recovered/Not Resolved]
  - Sedation [Unknown]
  - Hyperprolactinaemia [Unknown]

NARRATIVE: CASE EVENT DATE: 2019
